FAERS Safety Report 5044053-9 (Version None)
Quarter: 2006Q2

REPORT INFORMATION
  Report Type: 
  Country: None (occurrence: None)
  Receive Date: 20060601
  Receipt Date: 20060221
  Transmission Date: 20061013
  Serious: No
  Sender: FDA-Public Use
  Company Number: 2006PV009027

PATIENT
  Age: 73 Year
  Sex: Male
  Weight: 98.8842 kg

DRUGS (2)
  1. BYETTA [Suspect]
     Indication: DIABETES MELLITUS NON-INSULIN-DEPENDENT
     Dosage: SEE IMAGE
     Route: 058
     Dates: start: 20060113
  2. NOVOLIN 70/30 [Concomitant]

REACTIONS (3)
  - COUGH [None]
  - LARYNGITIS [None]
  - SINUSITIS [None]
